FAERS Safety Report 6708907-7 (Version None)
Quarter: 2010Q2

REPORT INFORMATION
  Report Type: 
  Country: None (occurrence: None)
  Receive Date: 20100504
  Receipt Date: 20100427
  Transmission Date: 20101027
  Serious: Yes (Other)
  Sender: FDA-Public Use
  Company Number: US-JNJFOC-20100407361

PATIENT
  Age: 37 Year
  Sex: Female
  Weight: 45.36 kg

DRUGS (2)
  1. MOTRIN IB SINUS [Suspect]
     Route: 048
  2. MOTRIN IB SINUS [Suspect]
     Indication: OROPHARYNGEAL PAIN
     Route: 048

REACTIONS (3)
  - APNOEA [None]
  - COLD SWEAT [None]
  - PALPITATIONS [None]
